FAERS Safety Report 13672051 (Version 1)
Quarter: 2017Q2

REPORT INFORMATION
  Report Type: Report from Study
  Country: US (occurrence: US)
  Receive Date: 20170621
  Receipt Date: 20170621
  Transmission Date: 20170830
  Serious: Yes (Death, Hospitalization, Other)
  Sender: FDA-Public Use
  Company Number: US-JNJFOC-20170421716

PATIENT
  Sex: Female

DRUGS (9)
  1. IMBRUVICA [Suspect]
     Active Substance: IBRUTINIB
     Indication: CHRONIC LYMPHOCYTIC LEUKAEMIA
     Route: 048
     Dates: start: 201410
  2. SYNTHROID [Concomitant]
     Active Substance: LEVOTHYROXINE SODIUM
  3. FIBERCON [Concomitant]
     Active Substance: CALCIUM POLYCARBOPHIL
  4. COZAAR [Concomitant]
     Active Substance: LOSARTAN POTASSIUM
  5. LIPITOR [Concomitant]
     Active Substance: ATORVASTATIN CALCIUM
  6. VITAMIN B [Concomitant]
     Active Substance: VITAMIN B
  7. IRON [Concomitant]
     Active Substance: IRON
  8. MUCINEX [Concomitant]
     Active Substance: GUAIFENESIN
  9. MVI [Concomitant]
     Active Substance: VITAMINS

REACTIONS (5)
  - Viral infection [Unknown]
  - Orthopaedic procedure [Unknown]
  - Thrombotic thrombocytopenic purpura [Fatal]
  - Haemolytic uraemic syndrome [Fatal]
  - Acute kidney injury [Unknown]
